FAERS Safety Report 8543593-5 (Version None)
Quarter: 2012Q3

REPORT INFORMATION
  Report Type: 
  Country: None (occurrence: None)
  Receive Date: 20120727
  Receipt Date: 20120314
  Transmission Date: 20120928
  Serious: Yes (Other)
  Sender: FDA-Public Use
  Company Number: EC-UCBSA-056033

PATIENT
  Age: 18 Year
  Sex: Female

DRUGS (3)
  1. LEVETIRACETAM [Suspect]
     Indication: CONVULSION
     Dosage: DAILY DOSE: 1500 MG
     Route: 048
     Dates: start: 20080301, end: 20120301
  2. CLONAZEPAM [Concomitant]
  3. VALPROIC ACID [Concomitant]

REACTIONS (1)
  - RENAL FAILURE [None]
